FAERS Safety Report 9535852 (Version 1)
Quarter: 2013Q2

REPORT INFORMATION
  Report Type: Spontaneous
  Country: US (occurrence: None)
  Receive Date: 20130507
  Receipt Date: 20130507
  Transmission Date: 20140414
  Serious: Yes (Hospitalization)
  Sender: FDA-Public Use
  Company Number: PHEH2012US005334

PATIENT
  Sex: Female

DRUGS (1)
  1. TASIGNA (AMN107) CAPSULE [Suspect]
     Indication: CHRONIC MYELOID LEUKAEMIA
     Route: 048
     Dates: start: 20110825, end: 20120307

REACTIONS (4)
  - Pancreatitis acute [None]
  - Abdominal pain [None]
  - Lipase increased [None]
  - Amylase increased [None]
